FAERS Safety Report 18861124 (Version 3)
Quarter: 2021Q3

REPORT INFORMATION
  Report Type: Report from Study
  Country: US (occurrence: US)
  Receive Date: 20210208
  Receipt Date: 20210715
  Transmission Date: 20211014
  Serious: No
  Sender: FDA-Public Use
  Company Number: NVSC2021US022583

PATIENT
  Sex: Female

DRUGS (1)
  1. KESIMPTA [Suspect]
     Active Substance: OFATUMUMAB
     Indication: MULTIPLE SCLEROSIS
     Dosage: 0.4 ML
     Route: 065
     Dates: start: 20210127

REACTIONS (4)
  - Alopecia [Unknown]
  - Weight increased [Unknown]
  - Pyrexia [Unknown]
  - Myalgia [Unknown]
